FAERS Safety Report 6223734-5 (Version None)
Quarter: 2009Q2

REPORT INFORMATION
  Report Type: 
  Country: None (occurrence: None)
  Receive Date: 20090611
  Receipt Date: 20090501
  Transmission Date: 20091009
  Serious: No
  Sender: FDA-Public Use
  Company Number: PR-ABBOTT-09P-131-0571177-00

PATIENT
  Sex: Female
  Weight: 58.566 kg

DRUGS (5)
  1. HUMIRA [Suspect]
     Indication: RHEUMATOID ARTHRITIS
     Dosage: 1 PEN
     Route: 058
     Dates: start: 20080101
  2. TOPROL-XL [Concomitant]
     Indication: ARRHYTHMIA
     Route: 048
  3. NASACOR AQ [Concomitant]
     Indication: SINUSITIS
     Dosage: AS INDICATED
     Route: 045
  4. ANTIVERT [Concomitant]
     Indication: DIZZINESS
     Dosage: AS INDICATED
     Route: 048
  5. SPIRIVA [Concomitant]
     Indication: ASTHMA
     Dosage: AS INDICATION
     Route: 055

REACTIONS (1)
  - INJECTION SITE REACTION [None]
